FAERS Safety Report 10005947 (Version 3)
Quarter: 2014Q3

REPORT INFORMATION
  Report Type: Spontaneous
  Country: FR (occurrence: FR)
  Receive Date: 20140313
  Receipt Date: 20140922
  Transmission Date: 20150326
  Serious: Yes (Other)
  Sender: FDA-Public Use
  Company Number: PHHY2014FR029868

PATIENT
  Age: 65 Year
  Sex: Female

DRUGS (8)
  1. PARACETAMOL [Concomitant]
     Active Substance: ACETAMINOPHEN
     Indication: INFLUENZA LIKE ILLNESS
     Dosage: 1 G, EVERY 6 HOURS
     Dates: start: 20140220, end: 20140220
  2. DEXAFREE//DEXAMETHASONE [Concomitant]
     Active Substance: DEXAMETHASONE
     Dosage: FOR 21 DYAYS PROGRESSIVE DECREASING DOSE
  3. DIFFU K [Concomitant]
     Active Substance: POTASSIUM CHLORIDE
     Dosage: 1 DF, QD
  4. UVEDOSE [Concomitant]
     Active Substance: CHOLECALCIFEROL
     Dosage: 1 DF, UNK
     Dates: start: 20140220, end: 20140220
  5. BACICOLINE [Concomitant]
     Dosage: FOR 7 DAYS
  6. COLLYRIUM [Concomitant]
     Dosage: FOR 21 DAYS AT PROGRESSIVE DECREASING DOSE
  7. ACLASTA [Suspect]
     Active Substance: ZOLEDRONIC ACID
     Indication: OSTEOPOROSIS
     Dosage: UNK
     Route: 042
     Dates: start: 20140221
  8. LACRINORM [Concomitant]
     Dosage: UNK UKN, UNK

REACTIONS (6)
  - Sensory disturbance [Recovered/Resolved]
  - Dyspepsia [Recovered/Resolved]
  - Iridocyclitis [Recovered/Resolved]
  - Myalgia [Recovered/Resolved]
  - Pyrexia [Recovered/Resolved]
  - Dysuria [Recovered/Resolved]

NARRATIVE: CASE EVENT DATE: 20140222
